FAERS Safety Report 24658023 (Version 1)
Quarter: 2024Q4

REPORT INFORMATION
  Report Type: Report from Study
  Country: CN (occurrence: CN)
  Receive Date: 20241125
  Receipt Date: 20241125
  Transmission Date: 20250115
  Serious: Yes (Hospitalization)
  Sender: ROCHE
  Company Number: CN-ROCHE-10000140249

PATIENT
  Age: 65 Year
  Sex: Male

DRUGS (1)
  1. OBINUTUZUMAB [Suspect]
     Active Substance: OBINUTUZUMAB
     Indication: Glomerulonephritis membranous
     Dosage: 1 G FOR 1 TO 2 DOSES WITH A MINIMUM 2 WEEK INTERVAL BETWEEN TWO DOSES
     Route: 042

REACTIONS (1)
  - COVID-19 pneumonia [Unknown]
